FAERS Safety Report 6160619-7 (Version None)
Quarter: 2009Q2

REPORT INFORMATION
  Report Type: 
  Country: None (occurrence: None)
  Receive Date: 20090420
  Receipt Date: 20090414
  Transmission Date: 20091009
  Serious: Yes (Other)
  Sender: FDA-Public Use
  Company Number: US-ASTRAZENECA-2009UW09390

PATIENT
  Age: 41 Year
  Sex: Female
  Weight: 65.8 kg

DRUGS (1)
  1. SEROQUEL [Suspect]
     Indication: INSOMNIA
     Route: 048
     Dates: start: 20090401, end: 20090401

REACTIONS (12)
  - ABNORMAL DREAMS [None]
  - BOWEL MOVEMENT IRREGULARITY [None]
  - DRY MOUTH [None]
  - DYSURIA [None]
  - FATIGUE [None]
  - FEELING ABNORMAL [None]
  - FEELING COLD [None]
  - HALLUCINATION [None]
  - INSOMNIA [None]
  - MALAISE [None]
  - SOMNAMBULISM [None]
  - VISION BLURRED [None]
